FAERS Safety Report 16027651 (Version 1)
Quarter: 2019Q1

REPORT INFORMATION
  Report Type: Spontaneous
  Country: ES (occurrence: ES)
  Receive Date: 20190304
  Receipt Date: 20190304
  Transmission Date: 20190418
  Serious: Yes (Death)
  Sender: FDA-Public Use
  Company Number: ES-B.I. PHARMACEUTICALS,INC./RIDGEFIELD-2019-12-000745

PATIENT
  Age: 69 Year
  Sex: Male

DRUGS (13)
  1. OMEPRAZOL [Concomitant]
     Active Substance: OMEPRAZOLE
     Indication: PRODUCT USED FOR UNKNOWN INDICATION
     Dosage: 20 MG / 28 CAPSULAS
     Route: 065
     Dates: start: 20181221
  2. FUROSEMIDA [Concomitant]
     Active Substance: FUROSEMIDE
     Indication: PRODUCT USED FOR UNKNOWN INDICATION
     Dosage: 40 MG / 30 COMPRIMIDOS
     Route: 065
     Dates: start: 20161223
  3. RAMIPRIL. [Concomitant]
     Active Substance: RAMIPRIL
     Indication: PRODUCT USED FOR UNKNOWN INDICATION
     Dosage: 2,5 MG / 28 COMPRIMIDOS
     Route: 065
     Dates: start: 20180926
  4. DIGOXINA [Concomitant]
     Active Substance: DIGOXIN
     Indication: PRODUCT USED FOR UNKNOWN INDICATION
     Dosage: TEOFARMA 0,25MG 50 COMPRIMIDOS
     Route: 065
     Dates: start: 20181221
  5. BISOPROLOL [Concomitant]
     Active Substance: BISOPROLOL
     Indication: PRODUCT USED FOR UNKNOWN INDICATION
     Dosage: 5 MG / 60 COMPRIMIDOS
     Route: 065
     Dates: start: 20151104
  6. XERISTAR [Concomitant]
     Active Substance: DULOXETINE HYDROCHLORIDE
     Indication: PRODUCT USED FOR UNKNOWN INDICATION
     Dosage: 60MG 28 CAPSULAS DURAS
     Route: 065
     Dates: start: 20170803
  7. BISOPROLOL [Concomitant]
     Active Substance: BISOPROLOL
     Indication: PRODUCT USED FOR UNKNOWN INDICATION
     Dosage: 10 MG / 28 COMPRIMIDOS
     Route: 065
     Dates: start: 20180926
  8. ABASAGLAR [Concomitant]
     Active Substance: INSULIN GLARGINE
     Indication: PRODUCT USED FOR UNKNOWN INDICATION
     Dosage: 100UNIDADES/ML 5 PLUMAS PRECARGADAS SOLUCION INYECT
     Route: 065
     Dates: start: 20181221
  9. ADIRO [Concomitant]
     Active Substance: ASPIRIN
     Indication: PRODUCT USED FOR UNKNOWN INDICATION
     Dosage: 100MG 30 COMPRIMIDOS GASTRORRESISTENTES EFG
     Route: 065
     Dates: start: 20181221
  10. JARDIANCE [Suspect]
     Active Substance: EMPAGLIFLOZIN
     Indication: DIABETIC NEPHROPATHY
     Dosage: 1 TABLET EVERY DAY
     Route: 048
     Dates: start: 20180926
  11. ORFIDAL [Concomitant]
     Active Substance: LORAZEPAM
     Indication: PRODUCT USED FOR UNKNOWN INDICATION
     Dosage: 1MG 25 COMPRIMIDOS
     Route: 065
     Dates: start: 20180705
  12. EFFICIB [Concomitant]
     Active Substance: METFORMIN HYDROCHLORIDE\SITAGLIPTIN PHOSPHATE
     Indication: PRODUCT USED FOR UNKNOWN INDICATION
     Dosage: 50MG/1000MG 56 COMPRIMIDOS RECUB
     Route: 065
     Dates: start: 20180731
  13. QUETIAPINA [Concomitant]
     Active Substance: QUETIAPINE
     Indication: PRODUCT USED FOR UNKNOWN INDICATION
     Dosage: 25 MG / 60 COMPRIMIDOS RECUBIERTOS
     Route: 065
     Dates: start: 20181123

REACTIONS (1)
  - Urinary tract infection [Fatal]

NARRATIVE: CASE EVENT DATE: 20190106
